FAERS Safety Report 19525828 (Version 2)
Quarter: 2023Q2

REPORT INFORMATION
  Report Type: Spontaneous
  Country: US (occurrence: US)
  Receive Date: 20210713
  Receipt Date: 20230619
  Transmission Date: 20230722
  Serious: Yes (Other)
  Sender: FDA-Public Use
  Company Number: US-STRIDES ARCOLAB LIMITED-2021SP010298

PATIENT
  Age: 60 Year
  Sex: Male

DRUGS (3)
  1. RANITIDINE [Suspect]
     Active Substance: RANITIDINE
     Indication: Dyspepsia
     Dosage: UNK
     Route: 048
     Dates: start: 199601, end: 201901
  2. RANITIDINE [Suspect]
     Active Substance: RANITIDINE
     Indication: Gastrooesophageal reflux disease
     Dosage: UNK RANITIDINE (ZANTAC), BY PRESCRIPTION
     Route: 065
     Dates: start: 1996, end: 2019
  3. RANITIDINE [Suspect]
     Active Substance: RANITIDINE
     Dosage: UNK RANITIDINE, BY PRESCRIPTION
     Route: 065
     Dates: start: 1996, end: 2019

REACTIONS (3)
  - Colorectal cancer [Unknown]
  - Prostate cancer [Unknown]
  - Bladder cancer [Unknown]

NARRATIVE: CASE EVENT DATE: 20181201
